FAERS Safety Report 6123535-2 (Version None)
Quarter: 2009Q1

REPORT INFORMATION
  Report Type: 
  Country: None (occurrence: None)
  Receive Date: 20090318
  Receipt Date: 20090316
  Transmission Date: 20090719
  Serious: Yes (Disabling, Other)
  Sender: FDA-Public Use
  Company Number: GB-MERCK-0605GBR00035

PATIENT
  Age: 71 Year
  Sex: Male

DRUGS (8)
  1. ZOCOR [Suspect]
     Indication: HYPERCHOLESTEROLAEMIA
     Route: 048
     Dates: start: 20031212, end: 20060322
  2. ZOCOR [Suspect]
     Route: 048
     Dates: start: 20020210, end: 20030121
  3. ASPIRIN [Concomitant]
     Indication: GLOBAL AMNESIA
     Route: 048
     Dates: start: 20050715
  4. ASPIRIN [Concomitant]
     Indication: TRANSIENT ISCHAEMIC ATTACK
     Route: 048
     Dates: start: 20050715
  5. DOTHIEPIN HYDROCHLORIDE [Concomitant]
     Route: 048
     Dates: start: 20050314, end: 20060111
  6. ACETAMINOPHEN AND PROPOXYPHENE HYDROCHLORIDE [Concomitant]
     Route: 048
     Dates: start: 20021015, end: 20060111
  7. [THERAPY UNSPECIFIED] [Concomitant]
     Route: 065
  8. ACETAMINOPHEN [Concomitant]
     Route: 048
     Dates: start: 20021015, end: 20060111

REACTIONS (2)
  - ERECTILE DYSFUNCTION [None]
  - GLOBAL AMNESIA [None]
